FAERS Safety Report 11339664 (Version 1)
Quarter: 2015Q3

REPORT INFORMATION
  Report Type: Spontaneous
  Country: US (occurrence: None)
  Receive Date: 20150804
  Receipt Date: 20150804
  Transmission Date: 20151125
  Serious: Yes (Other)
  Sender: FDA-Public Use
  Company Number: None

PATIENT
  Age: 73 Year
  Sex: Female
  Weight: 58.97 kg

DRUGS (9)
  1. LEVOTHYROXINE. [Concomitant]
     Active Substance: LEVOTHYROXINE
  2. BABY ASPIRIN [Concomitant]
     Active Substance: ASPIRIN
  3. SIMVASTATIN. [Concomitant]
     Active Substance: SIMVASTATIN
  4. MULTI-VITAMIN [Concomitant]
     Active Substance: .ALPHA.-TOCOPHEROL ACETATE, DL-\ASCORBIC ACID\CYANOCOBALAMIN\FLUORIDE ION\FOLIC ACID\NIACIN\PYRIDOXINE\RIBOFLAVIN\THIAMINE\VITAMIN A\VITAMIN D
  5. CRANBERRY. [Concomitant]
     Active Substance: CRANBERRY
  6. OXYBUTYNIN ER [Suspect]
     Active Substance: OXYBUTYNIN
     Indication: BLADDER SPASM
     Dosage: 1 PILL AT BEDTIME ONCE DAILY
     Dates: start: 20150716, end: 20150723
  7. CIPROFLOXACIN. [Concomitant]
     Active Substance: CIPROFLOXACIN
  8. HYDROCHLOROTHIAZIDE. [Concomitant]
     Active Substance: HYDROCHLOROTHIAZIDE
  9. CALCIUM [Concomitant]
     Active Substance: CALCIUM

REACTIONS (11)
  - Mood altered [None]
  - Chest discomfort [None]
  - Dysphonia [None]
  - Balance disorder [None]
  - Rash [None]
  - Abdominal pain upper [None]
  - Pruritus [None]
  - Wheezing [None]
  - Disorientation [None]
  - Dry mouth [None]
  - Cough [None]

NARRATIVE: CASE EVENT DATE: 20150716
